FAERS Safety Report 5357212-2 (Version None)
Quarter: 2007Q2

REPORT INFORMATION
  Report Type: 
  Country: None (occurrence: None)
  Receive Date: 20070612
  Receipt Date: 20070531
  Transmission Date: 20071010
  Serious: Yes (Hospitalization)
  Sender: FDA-Public Use
  Company Number: 062-20785-06070255

PATIENT
  Age: 74 Year
  Sex: Male

DRUGS (7)
  1. THALIDOMIDE [Suspect]
     Indication: LEUKAEMIA PLASMACYTIC
     Dosage: 50 MG, 1 IN 1 D, ORAL
     Route: 048
     Dates: start: 20060201, end: 20060501
  2. VELCADE [Suspect]
     Indication: LEUKAEMIA PLASMACYTIC
     Dosage: 1 MG
     Dates: start: 20060201, end: 20060301
  3. VINCRISTINE [Suspect]
     Indication: LEUKAEMIA PLASMACYTIC
     Dates: start: 20060101, end: 20060101
  4. BENDAMUSTIN                  (BENDAMUSTINE) [Concomitant]
  5. DEXAMETHASONE TAB [Concomitant]
  6. ADRIAMYCIN PFS [Concomitant]
  7. LYRICA [Concomitant]

REACTIONS (5)
  - BLOOD IMMUNOGLOBULIN A INCREASED [None]
  - CONDITION AGGRAVATED [None]
  - DISEASE PROGRESSION [None]
  - POLYNEUROPATHY [None]
  - PULMONARY HYPERTENSION [None]
